FAERS Safety Report 5734002-X (Version None)
Quarter: 2008Q2

REPORT INFORMATION
  Report Type: 
  Country: None (occurrence: None)
  Receive Date: 20080509
  Receipt Date: 20080502
  Transmission Date: 20081010
  Serious: Yes (Hospitalization)
  Sender: FDA-Public Use
  Company Number: US-ELI_LILLY_AND_COMPANY-US200805000555

PATIENT
  Sex: Female

DRUGS (7)
  1. BYETTA [Suspect]
     Indication: TYPE 2 DIABETES MELLITUS
     Dosage: 5 UG, 2/D
     Route: 058
     Dates: start: 20061001, end: 20061201
  2. BYETTA [Suspect]
     Dosage: 10 UG, 2/D
     Route: 058
     Dates: start: 20061201, end: 20080311
  3. BYETTA [Suspect]
     Dosage: 10 UG, 2/D
     Route: 058
     Dates: start: 20080313
  4. METFORMIN HCL [Concomitant]
     Indication: DIABETES MELLITUS
     Dosage: 1000 MG, 2/D
     Route: 048
  5. LANTUS [Concomitant]
     Indication: DIABETES MELLITUS
     Dosage: 70 U, EACH EVENING
  6. GLUCOTROL XL [Concomitant]
     Indication: DIABETES MELLITUS
     Dosage: 10 MG, 2/D
     Route: 048
  7. PLAVIX [Concomitant]
     Indication: DIABETES MELLITUS

REACTIONS (4)
  - BLOOD GLUCOSE INCREASED [None]
  - DRUG INEFFECTIVE [None]
  - MYOCARDIAL INFARCTION [None]
  - VOMITING [None]
